FAERS Safety Report 16197531 (Version 1)
Quarter: 2019Q2

REPORT INFORMATION
  Report Type: Spontaneous
  Country: US (occurrence: US)
  Receive Date: 20190311
  Receipt Date: 20190311
  Transmission Date: 20190711
  Serious: No
  Sender: FDA-Public Use
  Company Number: None

PATIENT
  Age: 48 Year
  Sex: Male

DRUGS (2)
  1. TALTZ [Suspect]
     Active Substance: IXEKIZUMAB
     Indication: PSORIATIC ARTHROPATHY
     Dosage: INJECT 160MG (2 PENS) SUBCUTANEOUSLY AT WEEK 0, THEN?80MG (1 PEN) AT WEEK 2 AS DIRECTED?
     Route: 058
     Dates: start: 201903
  2. TALTZ [Suspect]
     Active Substance: IXEKIZUMAB
     Dosage: ?          OTHER FREQUENCY:WEEK 2;?
     Route: 058

REACTIONS (1)
  - Product use in unapproved indication [None]
